FAERS Safety Report 5506545-5 (Version None)
Quarter: 2007Q4

REPORT INFORMATION
  Report Type: 
  Country: None (occurrence: None)
  Receive Date: 20071105
  Receipt Date: 20071029
  Transmission Date: 20080405
  Serious: Yes (Other)
  Sender: FDA-Public Use
  Company Number: B0492982A

PATIENT
  Age: 70 Year
  Sex: Male

DRUGS (4)
  1. ZEFIX [Suspect]
     Indication: HEPATITIS B
     Dosage: 100MG PER DAY
     Route: 048
     Dates: start: 20070730, end: 20071012
  2. GLYCYRRHIZIC ACID [Concomitant]
     Route: 048
  3. URSO 250 [Concomitant]
     Route: 048
  4. METHIONINE [Concomitant]

REACTIONS (1)
  - INTESTINAL OBSTRUCTION [None]
